FAERS Safety Report 4386306-3 (Version None)
Quarter: 2004Q2

REPORT INFORMATION
  Report Type: 
  Country: None (occurrence: None)
  Receive Date: 20040623
  Receipt Date: 20040614
  Transmission Date: 20050107
  Serious: Yes (Hospitalization)
  Sender: FDA-Public Use
  Company Number: 2004-06-0761

PATIENT
  Age: 51 Year
  Sex: Female
  Weight: 63 kg

DRUGS (10)
  1. REBETOL [Suspect]
     Indication: HEPATITIS C
     Dosage: 800 MG-1G QD ORAL; 1 GM QD ORAL
     Route: 048
     Dates: start: 20020213, end: 20020312
  2. REBETOL [Suspect]
     Indication: HEPATITIS C
     Dosage: 800 MG-1G QD ORAL; 1 GM QD ORAL
     Route: 048
     Dates: start: 20020213, end: 20031013
  3. REBETOL [Suspect]
     Indication: HEPATITIS C
     Dosage: 800 MG-1G QD ORAL; 1 GM QD ORAL
     Route: 048
     Dates: start: 20030613, end: 20031013
  4. PEGASYS [Suspect]
     Indication: HEPATITIS C
     Dosage: 180 UG QW
     Dates: start: 20030613, end: 20030926
  5. INTERFERON ALFA INJECTABLE [Suspect]
     Indication: HEPATITIS C
     Dosage: 3 MU TIW
     Dates: start: 20020213, end: 20020312
  6. SUSTIVA [Concomitant]
  7. ZERIT [Concomitant]
  8. VIDEX [Concomitant]
  9. EPIVIR [Concomitant]
  10. VIREAD [Concomitant]

REACTIONS (20)
  - ALANINE AMINOTRANSFERASE INCREASED [None]
  - ANAEMIA [None]
  - ANOREXIA [None]
  - ASPARTATE AMINOTRANSFERASE INCREASED [None]
  - ASTHENIA [None]
  - BLOOD BICARBONATE DECREASED [None]
  - BLOOD BILIRUBIN INCREASED [None]
  - BLOOD CREATINE PHOSPHOKINASE INCREASED [None]
  - BLOOD LACTIC ACID INCREASED [None]
  - CD4 LYMPHOCYTES DECREASED [None]
  - DEPRESSION [None]
  - INSOMNIA [None]
  - LACRIMAL DISORDER [None]
  - LIPASE INCREASED [None]
  - LIVER DISORDER [None]
  - MITOCHONDRIAL CYTOPATHY [None]
  - MYALGIA [None]
  - NAUSEA [None]
  - VERTIGO [None]
  - VIRAL LOAD INCREASED [None]
